FAERS Safety Report 6470888-1 (Version None)
Quarter: 2009Q4

REPORT INFORMATION
  Report Type: 
  Country: None (occurrence: None)
  Receive Date: 20091203
  Receipt Date: 20080122
  Transmission Date: 20100525
  Serious: Yes (Death)
  Sender: FDA-Public Use
  Company Number: JP-ELI_LILLY_AND_COMPANY-JP200801004720

PATIENT
  Sex: Male
  Weight: 71.6 kg

DRUGS (11)
  1. ALIMTA [Suspect]
     Indication: PLEURAL MESOTHELIOMA MALIGNANT
     Dosage: 900 MG, OTHER
     Route: 042
     Dates: start: 20071101, end: 20071204
  2. BRIPLATIN [Concomitant]
     Indication: PLEURAL MESOTHELIOMA MALIGNANT
     Dosage: 120 MG, OTHER
     Route: 042
     Dates: start: 20071101, end: 20071204
  3. PANVITAN [Concomitant]
     Dosage: 1 G, DAILY (1/D)
     Route: 048
     Dates: start: 20070411
  4. METHYCOBAL [Concomitant]
     Dosage: 1 MG, OTHER
     Route: 030
     Dates: start: 20070411
  5. RINDERON [Concomitant]
     Indication: PROPHYLAXIS
     Dosage: 2 MG, DAILY (1/D)
     Route: 048
  6. ZYLORIC [Concomitant]
     Indication: HYPERURICAEMIA
     Dosage: 100 MG, DAILY (1/D)
     Route: 048
  7. OXYCONTIN [Concomitant]
     Indication: CANCER PAIN
     Dosage: 120 MG, DAILY (1/D)
     Route: 048
  8. OXYCODONE HCL [Concomitant]
     Indication: CANCER PAIN
     Dosage: 5 MG, DAILY (1/D)
     Route: 048
     Dates: start: 20070529
  9. NOVAMIN [Concomitant]
     Indication: PROPHYLAXIS
     Dosage: 10 MG, DAILY (1/D)
     Route: 048
  10. MAGLAX /JPN/ [Concomitant]
     Indication: PROPHYLAXIS
     Dosage: 990 MG, DAILY (1/D)
     Route: 048
  11. MARZULENE [Concomitant]
     Indication: PROPHYLAXIS
     Dosage: 1.5 G, DAILY (1/D)
     Route: 048

REACTIONS (1)
  - ASPIRATION [None]
